FAERS Safety Report 7292751-9 (Version None)
Quarter: 2011Q1

REPORT INFORMATION
  Report Type: 
  Country: None (occurrence: None)
  Receive Date: 20110215
  Receipt Date: 20101108
  Transmission Date: 20110831
  Serious: Yes (Hospitalization, Other)
  Sender: FDA-Public Use
  Company Number: US-BAYER-201037945NA

PATIENT
  Sex: Female
  Weight: 135 kg

DRUGS (8)
  1. YAZ [Suspect]
     Indication: ORAL CONTRACEPTION
  2. YASMIN [Suspect]
     Indication: ACNE
     Dosage: UNK
     Dates: start: 20040101, end: 20040101
  3. OCELLA [Suspect]
     Indication: ORAL CONTRACEPTION
  4. OCELLA [Suspect]
     Indication: ACNE
     Dosage: UNK
     Dates: start: 20040101, end: 20040101
  5. UNCODEABLE ^UNCLASSIFIABLE^ [Concomitant]
     Dosage: UNK
     Dates: start: 20040524, end: 20040611
  6. UNCODEABLE ^UNCLASSIFIABLE^ [Concomitant]
     Indication: WEIGHT DECREASED
     Dosage: UNK
     Dates: start: 20040501
  7. YAZ [Suspect]
     Indication: ACNE
     Dosage: UNK
     Dates: start: 20040101, end: 20040101
  8. YASMIN [Suspect]
     Indication: ORAL CONTRACEPTION

REACTIONS (8)
  - ABDOMINAL PAIN UPPER [None]
  - CHEST PAIN [None]
  - GLUCOSE TOLERANCE IMPAIRED [None]
  - PULMONARY EMBOLISM [None]
  - PULMONARY INFARCTION [None]
  - NECK PAIN [None]
  - CHEST DISCOMFORT [None]
  - DYSPNOEA [None]
